FAERS Safety Report 13318202 (Version 4)
Quarter: 2017Q3

REPORT INFORMATION
  Report Type: Spontaneous
  Country: DE (occurrence: DE)
  Receive Date: 20170310
  Receipt Date: 20170811
  Transmission Date: 20171127
  Serious: Yes (Hospitalization, Other)
  Sender: FDA-Public Use
  Company Number: DE-BIOGEN-2017BI00367115

PATIENT
  Age: 79 Year
  Sex: Female

DRUGS (6)
  1. FAMPYRA [Suspect]
     Active Substance: DALFAMPRIDINE
     Indication: GAIT DISTURBANCE
     Route: 048
  2. ENALAPRIL [Concomitant]
     Active Substance: ENALAPRIL
     Indication: PRODUCT USED FOR UNKNOWN INDICATION
     Route: 065
  3. METFORMIN [Concomitant]
     Active Substance: METFORMIN HYDROCHLORIDE
     Indication: DIABETES MELLITUS
     Route: 065
  4. OMNIFLORA [Concomitant]
     Indication: PRODUCT USED FOR UNKNOWN INDICATION
     Route: 065
  5. INSULIN [Concomitant]
     Active Substance: INSULIN NOS
     Indication: PRODUCT USED FOR UNKNOWN INDICATION
     Route: 065
  6. PANTOPRAZOLE [Concomitant]
     Active Substance: PANTOPRAZOLE
     Indication: PRODUCT USED FOR UNKNOWN INDICATION
     Route: 065

REACTIONS (22)
  - Decreased appetite [Recovered/Resolved]
  - Deep vein thrombosis [Unknown]
  - Coagulation time shortened [Unknown]
  - Hypertension [Unknown]
  - Multiple sclerosis relapse [Unknown]
  - Anal incontinence [Not Recovered/Not Resolved]
  - Hepatic steatosis [Unknown]
  - Dehydration [Recovered/Resolved]
  - Urinary incontinence [Not Recovered/Not Resolved]
  - Weight decreased [Unknown]
  - Fluid intake reduced [Recovered/Resolved]
  - Acute kidney injury [Recovered/Resolved]
  - Lactic acidosis [Recovered/Resolved]
  - Lymphadenopathy [Unknown]
  - Diverticulitis [Recovered/Resolved]
  - Hypokalaemia [Recovered/Resolved]
  - Hiatus hernia [Unknown]
  - Beta haemolytic streptococcal infection [Unknown]
  - Urinary tract infection enterococcal [Unknown]
  - Gastroenteritis clostridial [Recovered/Resolved]
  - Diarrhoea infectious [Unknown]
  - Hypotension [Unknown]

NARRATIVE: CASE EVENT DATE: 20160818
